FAERS Safety Report 16892373 (Version 1)
Quarter: 2019Q4

REPORT INFORMATION
  Report Type: Spontaneous
  Country: US (occurrence: US)
  Receive Date: 20191007
  Receipt Date: 20191007
  Transmission Date: 20200122
  Serious: No
  Sender: FDA-Public Use
  Company Number: US-SA-2019SA272953

PATIENT
  Age: 74 Year
  Sex: Female

DRUGS (1)
  1. ZANTAC 75 [Suspect]
     Active Substance: RANITIDINE HYDROCHLORIDE
     Dosage: 6 DF, QD
     Route: 065

REACTIONS (8)
  - Migraine [Unknown]
  - Gastrointestinal disorder [Unknown]
  - Dizziness [Unknown]
  - Gait inability [Unknown]
  - Malaise [Unknown]
  - Withdrawal syndrome [Unknown]
  - Abdominal discomfort [Unknown]
  - Diarrhoea [Unknown]
